FAERS Safety Report 5460447-1 (Version None)
Quarter: 2007Q3

REPORT INFORMATION
  Report Type: 
  Country: None (occurrence: None)
  Receive Date: 20070919
  Receipt Date: 20070910
  Transmission Date: 20080115
  Serious: No
  Sender: FDA-Public Use
  Company Number: US-PFIZER INC-2006133805

PATIENT
  Sex: Male

DRUGS (2)
  1. CELEBREX [Suspect]
     Indication: PAIN MANAGEMENT
     Dates: start: 20020503, end: 20050201
  2. VIOXX [Suspect]

REACTIONS (1)
  - NO ADVERSE REACTION [None]
